FAERS Safety Report 9032751 (Version 2)
Quarter: 2013Q2

REPORT INFORMATION
  Report Type: Spontaneous
  Country: US (occurrence: US)
  Receive Date: 20130128
  Receipt Date: 20130403
  Transmission Date: 20140414
  Serious: No
  Sender: FDA-Public Use
  Company Number: US-BIOGENIDEC-2013BI007314

PATIENT
  Sex: Female

DRUGS (1)
  1. AVONEX [Suspect]
     Indication: MULTIPLE SCLEROSIS
     Route: 030
     Dates: start: 20040101

REACTIONS (7)
  - Osteoarthritis [Unknown]
  - Fall [Recovered/Resolved]
  - Injury [Unknown]
  - Gait disturbance [Unknown]
  - Fatigue [Unknown]
  - Influenza like illness [Unknown]
  - Headache [Unknown]
